FAERS Safety Report 6242109-6 (Version None)
Quarter: 2009Q2

REPORT INFORMATION
  Report Type: 
  Country: None (occurrence: None)
  Receive Date: 20090624
  Receipt Date: 20071126
  Transmission Date: 20091009
  Serious: Yes (Other)
  Sender: FDA-Public Use
  Company Number: US-ASTRAZENECA-2007UW03752

PATIENT
  Age: 34 Year
  Sex: Female

DRUGS (10)
  1. SEROQUEL [Suspect]
     Indication: DEPRESSION
     Route: 048
     Dates: start: 20001101, end: 20051001
  2. SEROQUEL [Suspect]
     Route: 048
     Dates: start: 20021108
  3. SEROQUEL [Suspect]
     Route: 048
     Dates: start: 20021210
  4. SEROQUEL [Suspect]
     Route: 048
     Dates: start: 20030214
  5. NEURONTIN [Concomitant]
     Dates: start: 20020912
  6. AMBIEN [Concomitant]
     Dates: start: 20020912
  7. BUSPIRONE HCL [Concomitant]
     Dates: start: 20020912
  8. WELLBUTRIN [Concomitant]
     Dates: start: 20020912
  9. PAXIL [Concomitant]
     Dates: start: 20030114
  10. LORAZEPAM [Concomitant]
     Dates: start: 20031212

REACTIONS (2)
  - DIABETES MELLITUS [None]
  - DIABETIC NEUROPATHY [None]
